FAERS Safety Report 15456287 (Version 2)
Quarter: 2018Q4

REPORT INFORMATION
  Report Type: Spontaneous
  Country: GB (occurrence: GB)
  Receive Date: 20181002
  Receipt Date: 20181008
  Transmission Date: 20190204
  Serious: Yes (Hospitalization, Other)
  Sender: FDA-Public Use
  Company Number: GB-BAYER-2018-179687

PATIENT
  Age: 43 Year
  Sex: Female

DRUGS (1)
  1. MIRENA [Suspect]
     Active Substance: LEVONORGESTREL
     Dosage: 20 MCG/24HR, CONT
     Route: 015
     Dates: start: 20180917, end: 201809

REACTIONS (19)
  - Sepsis [None]
  - Burning sensation [Not Recovered/Not Resolved]
  - Tremor [None]
  - Hypertension [None]
  - Intentional medical device removal by patient [None]
  - Dysstasia [None]
  - Photophobia [Not Recovered/Not Resolved]
  - Dizziness postural [Not Recovered/Not Resolved]
  - Feeling abnormal [Not Recovered/Not Resolved]
  - Device intolerance [None]
  - Medical device discomfort [None]
  - Procedural dizziness [None]
  - Adnexa uteri pain [Not Recovered/Not Resolved]
  - Abdominal distension [None]
  - Uterine infection [None]
  - Headache [Not Recovered/Not Resolved]
  - Nausea [Not Recovered/Not Resolved]
  - Kidney infection [Recovered/Resolved]
  - Fatigue [None]

NARRATIVE: CASE EVENT DATE: 201809
